FAERS Safety Report 5599856-9 (Version None)
Quarter: 2008Q1

REPORT INFORMATION
  Report Type: 
  Country: None (occurrence: None)
  Receive Date: 20080123
  Receipt Date: 20080114
  Transmission Date: 20080703
  Serious: Yes (Other)
  Sender: FDA-Public Use
  Company Number: US-ALLERGAN-0800615US

PATIENT

DRUGS (1)
  1. BOTOX [Suspect]
     Indication: HYPERHIDROSIS
     Dosage: UNK, SINGLE
     Route: 065

REACTIONS (2)
  - SKIN HAEMORRHAGE [None]
  - SKIN LESION [None]
